FAERS Safety Report 4741400-X (Version None)
Quarter: 2005Q3

REPORT INFORMATION
  Report Type: 
  Country: None (occurrence: None)
  Receive Date: 20050808
  Receipt Date: 20050726
  Transmission Date: 20060218
  Serious: Yes (Hospitalization)
  Sender: FDA-Public Use
  Company Number: 233315K05USA

PATIENT
  Age: 45 Year
  Sex: Female

DRUGS (5)
  1. REBIF [Suspect]
     Indication: MULTIPLE SCLEROSIS
     Dosage: 44 MCG, 3 IN 1 WEEKS, SUBCUTANEOUS
     Route: 058
     Dates: start: 20041122
  2. BACLOFEN [Concomitant]
  3. EFFEXOR [Concomitant]
  4. AMBIEN [Concomitant]
  5. DIAZEPAM [Concomitant]

REACTIONS (1)
  - FACIAL PALSY [None]
